FAERS Safety Report 13709934 (Version 1)
Quarter: 2017Q3

REPORT INFORMATION
  Report Type: Report from Study
  Country: US (occurrence: US)
  Receive Date: 20170703
  Receipt Date: 20170703
  Transmission Date: 20171127
  Serious: Yes (Other)
  Sender: FDA-Public Use
  Company Number: US-ROCHE-1954731

PATIENT

DRUGS (1)
  1. BEVACIZUMAB. [Suspect]
     Active Substance: BEVACIZUMAB
     Indication: CHRONIC LYMPHOCYTIC LEUKAEMIA
     Route: 065

REACTIONS (6)
  - Torsade de pointes [Unknown]
  - Angiopathy [Unknown]
  - Bladder pain [Unknown]
  - Blood creatinine increased [Unknown]
  - Renal failure [Unknown]
  - Left ventricular failure [Unknown]
